FAERS Safety Report 26190465 (Version 2)
Quarter: 2025Q4

REPORT INFORMATION
  Report Type: Spontaneous
  Country: US (occurrence: US)
  Receive Date: 20251223
  Receipt Date: 20251223
  Transmission Date: 20260119
  Serious: Yes (Other)
  Sender: ROCHE
  Company Number: US-ROCHE-10000463086

PATIENT
  Age: 60 Year
  Sex: Female

DRUGS (2)
  1. XOLAIR [Suspect]
     Active Substance: OMALIZUMAB
     Indication: Product used for unknown indication
  2. ATOVAQUONE [Concomitant]
     Active Substance: ATOVAQUONE

REACTIONS (4)
  - Lyme disease [Unknown]
  - Babesiosis [Unknown]
  - Somnolence [Unknown]
  - Lethargy [Unknown]
